FAERS Safety Report 7427783-0 (Version None)
Quarter: 2011Q2

REPORT INFORMATION
  Report Type: 
  Country: None (occurrence: None)
  Receive Date: 20110421
  Receipt Date: 20110418
  Transmission Date: 20111010
  Serious: Yes (Death, Hospitalization)
  Sender: FDA-Public Use
  Company Number: US-ASTRAZENECA-2006UW21563

PATIENT
  Age: 435 Month
  Sex: Female
  Weight: 125.1 kg

DRUGS (76)
  1. SEROQUEL [Suspect]
     Indication: DEPRESSION
     Dosage: 25 MG, 100 MG, 200 MG, 300 MG AND 600 MG - 1200 MG
     Route: 048
     Dates: start: 20020507
  2. EFFEXOR [Concomitant]
     Dates: start: 20051001, end: 20051101
  3. NEXIUM [Concomitant]
     Route: 048
     Dates: start: 20020911
  4. SINGULAIR [Concomitant]
     Route: 048
     Dates: start: 20021103
  5. CLARINEX [Concomitant]
  6. PROMETHAZINE [Concomitant]
  7. DIFLUCAN [Concomitant]
  8. ZITHROMAX [Concomitant]
  9. ZAROXOLYN [Concomitant]
  10. DESMOPRESSIN ACETATE [Concomitant]
  11. SEROQUEL [Suspect]
     Indication: SLEEP DISORDER
     Dosage: 25 MG, 100 MG, 200 MG, 300 MG AND 600 MG - 1200 MG
     Route: 048
     Dates: start: 20020507
  12. SEROQUEL [Suspect]
     Dosage: 25 - 300 MG
     Route: 048
     Dates: start: 20000501, end: 20060101
  13. HYDROCHLOROTHIAZIDE [Concomitant]
     Route: 048
     Dates: start: 20020515
  14. ESTRATEST [Concomitant]
     Dosage: EVERYDAY
     Route: 048
     Dates: start: 20030724
  15. ZYRTEC [Concomitant]
  16. TRIAMCINOLONE [Concomitant]
  17. MAXZIDE [Concomitant]
  18. TUSSIONEX [Concomitant]
  19. CLONIDINE [Concomitant]
  20. KADIAN [Concomitant]
  21. CHERATUSSIN [Concomitant]
  22. FLEXERIL [Concomitant]
  23. ATIVAN [Concomitant]
     Route: 048
     Dates: start: 20020422
  24. AMITRIPTYLINE HCL [Concomitant]
     Route: 048
     Dates: start: 20020930
  25. SYNTHROID [Concomitant]
     Dosage: 75 MCG,EVERYDAY
     Route: 048
     Dates: start: 20021103
  26. COMBIVENT [Concomitant]
  27. PLAQUENIL [Concomitant]
  28. DARVOCET [Concomitant]
  29. OXYCODONE HCL [Concomitant]
  30. CLINDAMYCIN [Concomitant]
  31. GUAIFENESIN [Concomitant]
  32. REMERON [Concomitant]
  33. CELEBREX [Concomitant]
  34. CYCLOBENZAPRINE [Concomitant]
  35. DITROPAN XL [Concomitant]
  36. PULMICORT [Concomitant]
  37. PREVACID [Concomitant]
  38. HYOSCYAMINE [Concomitant]
  39. MYCELEX [Concomitant]
  40. PHENAZOPYRIDINE HCL TAB [Concomitant]
  41. FLURAZEPAM [Concomitant]
  42. PRILOSEC [Concomitant]
     Route: 048
     Dates: start: 20030724
  43. DETROL LA [Concomitant]
  44. VICODIN [Concomitant]
  45. LEVAQUIN [Concomitant]
  46. ACTOS [Concomitant]
  47. REGLAN [Concomitant]
  48. LIDODERM [Concomitant]
  49. IMITREX [Concomitant]
  50. HALDOL [Concomitant]
  51. SEROQUEL [Suspect]
     Dosage: 25 - 300 MG
     Route: 048
     Dates: start: 20000501, end: 20060101
  52. SERZONE [Concomitant]
     Route: 048
     Dates: start: 20021029
  53. MAXALT [Concomitant]
  54. PREDNISONE [Concomitant]
     Dates: start: 20021108
  55. FOSAMAX [Concomitant]
  56. LASIX [Concomitant]
     Route: 048
     Dates: start: 20030721
  57. XENICAL [Concomitant]
  58. CIPRO [Concomitant]
  59. ZYPREXA [Concomitant]
  60. WELLBUTRIN [Concomitant]
     Route: 048
     Dates: start: 20021029
  61. PAXIL [Concomitant]
     Route: 048
     Dates: start: 20030407
  62. COMPAZINE [Concomitant]
  63. SEREVENT [Concomitant]
  64. FLOVENT [Concomitant]
  65. METOPROLOL [Concomitant]
  66. ZOFRAN [Concomitant]
  67. ALBUTEROL [Concomitant]
  68. VIOXX [Concomitant]
  69. EFFEXOR [Concomitant]
     Route: 048
     Dates: start: 20021017
  70. AMBIEN [Concomitant]
     Route: 048
     Dates: start: 20020809
  71. POTASSIUM [Concomitant]
     Dosage: 10MEQ-40MEQ
     Route: 048
     Dates: start: 20021115
  72. NEURONTIN [Concomitant]
     Route: 048
     Dates: start: 20021111
  73. TIZANIDINE [Concomitant]
  74. CARDIZEM [Concomitant]
  75. DURAGESIC [Concomitant]
  76. HYDROXYCHLOROQUINE SULFATE [Concomitant]
     Route: 048
     Dates: start: 20021130

REACTIONS (19)
  - SLEEP APNOEA SYNDROME [None]
  - FLUID OVERLOAD [None]
  - ACIDOSIS [None]
  - ABDOMINAL PAIN [None]
  - TYPE 2 DIABETES MELLITUS [None]
  - DEATH [None]
  - CARDIAC ARREST [None]
  - SEPTIC SHOCK [None]
  - PNEUMOPERITONEUM [None]
  - HYPERTENSION [None]
  - TYPE 1 DIABETES MELLITUS [None]
  - CHOLELITHIASIS [None]
  - HYPOTENSION [None]
  - TACHYCARDIA [None]
  - CHOLECYSTITIS [None]
  - GASTRIC BYPASS [None]
  - RESPIRATORY FAILURE [None]
  - GASTROOESOPHAGEAL REFLUX DISEASE [None]
  - PYELONEPHRITIS [None]
